FAERS Safety Report 14599976 (Version 1)
Quarter: 2018Q1

REPORT INFORMATION
  Report Type: Spontaneous
  Country: FR (occurrence: FR)
  Receive Date: 20180305
  Receipt Date: 20180305
  Transmission Date: 20180509
  Serious: Yes (Other)
  Sender: FDA-Public Use
  Company Number: FR-PFIZER INC-2018086941

PATIENT
  Age: 40 Year
  Sex: Female
  Weight: 48 kg

DRUGS (2)
  1. TAZOCILLINE [Suspect]
     Active Substance: PIPERACILLIN SODIUM\TAZOBACTAM SODIUM
     Indication: PYELONEPHRITIS
     Dosage: 12 G, 1X/DAY
     Dates: start: 20171103
  2. PETHIDINE RENAUDIN [Suspect]
     Active Substance: MEPERIDINE
     Dosage: UNK
     Route: 040

REACTIONS (1)
  - Seizure [Recovered/Resolved]

NARRATIVE: CASE EVENT DATE: 20171105
